FAERS Safety Report 9445967 (Version 1)
Quarter: 2013Q3

REPORT INFORMATION
  Report Type: Spontaneous
  Country: US (occurrence: US)
  Receive Date: 20130807
  Receipt Date: 20130807
  Transmission Date: 20140515
  Serious: No
  Sender: FDA-Public Use
  Company Number: US-TEVA-422977USA

PATIENT
  Age: 31 Year
  Sex: Female
  Weight: 47.67 kg

DRUGS (2)
  1. PARAGARD 380A [Suspect]
     Indication: CONTRACEPTION
     Route: 015
     Dates: start: 20130510
  2. CLONAZEPAM [Concomitant]
     Indication: ANXIETY
     Dosage: 1 MILLIGRAM DAILY;
     Route: 048

REACTIONS (3)
  - Metrorrhagia [Not Recovered/Not Resolved]
  - Muscle spasms [Recovered/Resolved]
  - Dizziness [Recovered/Resolved]
